FAERS Safety Report 10446654 (Version 1)
Quarter: 2014Q3

REPORT INFORMATION
  Report Type: Spontaneous
  Country: US (occurrence: None)
  Receive Date: 20140910
  Receipt Date: 20140910
  Transmission Date: 20150326
  Serious: Yes (Disabling, Other)
  Sender: FDA-Public Use
  Company Number: None

PATIENT
  Age: 62 Year
  Sex: Male
  Weight: 131.54 kg

DRUGS (1)
  1. TRAVATAN Z [Suspect]
     Active Substance: TRAVOPROST
     Indication: GLAUCOMA
     Dosage: ONE DROP AT BEDTIME ONCE DAILY INTO THE EYE
     Route: 047
     Dates: start: 20140701, end: 20140724

REACTIONS (9)
  - Mouth ulceration [None]
  - Chills [None]
  - Headache [None]
  - Abdominal pain upper [None]
  - Diarrhoea [None]
  - Viral infection [None]
  - Pain [None]
  - Feeling abnormal [None]
  - Oral pain [None]

NARRATIVE: CASE EVENT DATE: 20140721
